FAERS Safety Report 15987778 (Version 2)
Quarter: 2019Q2

REPORT INFORMATION
  Report Type: Spontaneous
  Country: US (occurrence: US)
  Receive Date: 20190220
  Receipt Date: 20190509
  Transmission Date: 20190711
  Serious: Yes (Death)
  Sender: FDA-Public Use
  Company Number: US-PFIZER INC-2019057443

PATIENT
  Age: 60 Year
  Sex: Female
  Weight: 40.36 kg

DRUGS (1)
  1. IBRANCE [Suspect]
     Active Substance: PALBOCICLIB
     Indication: NON-SMALL CELL LUNG CANCER
     Dosage: UNK
     Dates: start: 201902, end: 201903

REACTIONS (3)
  - Product use in unapproved indication [Unknown]
  - Neoplasm progression [Fatal]
  - Off label use [Unknown]

NARRATIVE: CASE EVENT DATE: 20190205
